FAERS Safety Report 22320243 (Version 1)
Quarter: 2023Q2

REPORT INFORMATION
  Report Type: Spontaneous
  Country: JP (occurrence: JP)
  Receive Date: 20230515
  Receipt Date: 20230515
  Transmission Date: 20230722
  Serious: Yes (Other)
  Sender: FDA-Public Use
  Company Number: JP-SEBELA IRELAND LIMITED-2023SEB00030

PATIENT
  Age: 44 Year
  Sex: Male

DRUGS (1)
  1. AZATHIOPRINE [Suspect]
     Active Substance: AZATHIOPRINE
     Indication: Crohn^s disease
     Dosage: UNK

REACTIONS (3)
  - Portal hypertension [Not Recovered/Not Resolved]
  - Splenomegaly [Not Recovered/Not Resolved]
  - Varices oesophageal [Not Recovered/Not Resolved]
